FAERS Safety Report 18494824 (Version 7)
Quarter: 2021Q4

REPORT INFORMATION
  Report Type: Report from Study
  Country: US (occurrence: US)
  Receive Date: 20201112
  Receipt Date: 20211027
  Transmission Date: 20220304
  Serious: No
  Sender: FDA-Public Use
  Company Number: NVSC2020US294784

PATIENT
  Sex: Female

DRUGS (1)
  1. KESIMPTA [Suspect]
     Active Substance: OFATUMUMAB
     Indication: Relapsing-remitting multiple sclerosis
     Dosage: 20 MG, QMO (SOLUTION FOR INJECTION)
     Route: 058
     Dates: start: 20201101

REACTIONS (4)
  - Incorrect dose administered [Unknown]
  - Underdose [Recovered/Resolved]
  - Visual impairment [Unknown]
  - Fall [Recovered/Resolved]
